FAERS Safety Report 25094542 (Version 2)
Quarter: 2025Q2

REPORT INFORMATION
  Report Type: Spontaneous
  Country: US (occurrence: US)
  Receive Date: 20250319
  Receipt Date: 20250423
  Transmission Date: 20250717
  Serious: Yes (Hospitalization, Other)
  Sender: CSL BEHRING
  Company Number: US-BEH-2025199461

PATIENT
  Age: 66 Year
  Sex: Female

DRUGS (2)
  1. HIZENTRA [Suspect]
     Active Substance: HUMAN IMMUNOGLOBULIN G
     Indication: Immunodeficiency common variable
     Dosage: 12 G, QW
     Route: 058
     Dates: start: 20190808
  2. HIZENTRA [Suspect]
     Active Substance: HUMAN IMMUNOGLOBULIN G
     Route: 065
     Dates: start: 20250313

REACTIONS (2)
  - Pulmonary oedema [Unknown]
  - Pneumonia [Unknown]

NARRATIVE: CASE EVENT DATE: 20250217
